FAERS Safety Report 6955416-6 (Version None)
Quarter: 2010Q3

REPORT INFORMATION
  Report Type: 
  Country: None (occurrence: None)
  Receive Date: 20100830
  Receipt Date: 20100819
  Transmission Date: 20110219
  Serious: Yes (Hospitalization, Other)
  Sender: FDA-Public Use
  Company Number: US-AMGEN-QUU432711

PATIENT
  Sex: Female

DRUGS (3)
  1. ENBREL [Suspect]
     Indication: PSORIATIC ARTHROPATHY
     Route: 058
     Dates: start: 20080218
  2. ENBREL [Suspect]
     Indication: PSORIASIS
  3. HUMIRA [Concomitant]

REACTIONS (6)
  - DRUG INEFFECTIVE [None]
  - HYSTERECTOMY [None]
  - INJECTION SITE HAEMATOMA [None]
  - INJECTION SITE PAIN [None]
  - PSORIASIS [None]
  - UTERINE DILATION AND CURETTAGE [None]
